FAERS Safety Report 9447373 (Version 8)
Quarter: 2017Q3

REPORT INFORMATION
  Report Type: Report from Study
  Country: JP (occurrence: JP)
  Receive Date: 20130808
  Receipt Date: 20170712
  Transmission Date: 20171128
  Serious: Yes (Hospitalization)
  Sender: FDA-Public Use
  Company Number: JP-ROCHE-1258132

PATIENT
  Age: 14 Year
  Sex: Male
  Weight: 59 kg

DRUGS (35)
  1. RITUXIMAB. [Suspect]
     Active Substance: RITUXIMAB
     Route: 041
     Dates: start: 20110412, end: 20110412
  2. CALONAL [Concomitant]
     Active Substance: ACETAMINOPHEN
     Indication: PREMEDICATION
     Route: 048
     Dates: start: 20150326, end: 20150326
  3. ATARAX-P [Concomitant]
     Active Substance: HYDROXYZINE HYDROCHLORIDE
     Indication: PREMEDICATION
     Route: 042
     Dates: start: 20150326, end: 20150326
  4. BAKTAR [Concomitant]
     Active Substance: SULFAMETHOXAZOLE\TRIMETHOPRIM
     Indication: INFECTION PROPHYLAXIS
     Dosage: DOSE INTERVAL UNCERTAINTY
     Route: 048
     Dates: start: 20160623, end: 20161128
  5. RITUXIMAB. [Suspect]
     Active Substance: RITUXIMAB
     Indication: NEPHROTIC SYNDROME
     Route: 041
     Dates: start: 20110329, end: 20110329
  6. PREDNISOLONE. [Suspect]
     Active Substance: PREDNISOLONE
     Route: 048
     Dates: start: 20170322
  7. GASTER [Concomitant]
     Active Substance: FAMOTIDINE
     Route: 048
  8. CALONAL [Concomitant]
     Active Substance: ACETAMINOPHEN
     Indication: PREMEDICATION
     Dosage: SINGLE
     Route: 048
     Dates: start: 20110412, end: 20110412
  9. ATARAX-P [Concomitant]
     Active Substance: HYDROXYZINE HYDROCHLORIDE
     Indication: PREMEDICATION
     Route: 042
     Dates: start: 20151211, end: 20151211
  10. ACUATIM [Concomitant]
     Active Substance: NADIFLOXACIN
     Indication: ACNE
     Dosage: DOSAGE IS UNCERTAIN.
     Route: 003
     Dates: start: 20150514, end: 20150707
  11. RITUXIMAB. [Suspect]
     Active Substance: RITUXIMAB
     Dosage: AT THE INITIAL INFUSION RATE OF 30 MG/H AND THE MAXIMUM RATE OF 60 MG/H
     Route: 041
     Dates: start: 20150326, end: 20150326
  12. CALONAL [Concomitant]
     Active Substance: ACETAMINOPHEN
     Indication: PREMEDICATION
     Dosage: SINGLE
     Route: 048
     Dates: start: 20110329, end: 20110329
  13. ATARAX-P [Concomitant]
     Active Substance: HYDROXYZINE HYDROCHLORIDE
     Indication: PREMEDICATION
     Dosage: SINGLE
     Route: 042
     Dates: start: 20110412, end: 20110412
  14. RITUXIMAB. [Suspect]
     Active Substance: RITUXIMAB
     Dosage: AT THE INITIAL INFUSION RATE OF 30 MG/H AND THE MAXIMUM RATE OF 60 MG/H
     Route: 041
     Dates: start: 20151211, end: 20151211
  15. BENZBROMARONE [Concomitant]
     Active Substance: BENZBROMARONE
     Indication: NEPHROTIC SYNDROME
     Dosage: DOSE INTERVAL UNCERTAINTY
     Route: 048
     Dates: start: 20170127
  16. RITUXIMAB. [Suspect]
     Active Substance: RITUXIMAB
     Indication: FOCAL SEGMENTAL GLOMERULOSCLEROSIS
     Route: 041
     Dates: start: 20110405, end: 20110405
  17. MEVALOTIN [Concomitant]
     Active Substance: PRAVASTATIN SODIUM
     Route: 048
  18. ZYLORIC [Concomitant]
     Active Substance: ALLOPURINOL
     Indication: HYPERURICAEMIA
     Dosage: DOSE INTERVAL UNCERTAINTY
     Route: 048
     Dates: end: 20160727
  19. FEBURIC [Concomitant]
     Active Substance: FEBUXOSTAT
     Indication: HYPERURICAEMIA
     Dosage: DOSE INTERVAL UNCERTAINTY
     Route: 048
     Dates: start: 20160728, end: 20160823
  20. FEBURIC [Concomitant]
     Active Substance: FEBUXOSTAT
     Indication: HYPERURICAEMIA
     Dosage: DOSE INTERVAL UNCERTAINTY
     Route: 048
     Dates: start: 20161026, end: 20170126
  21. RITUXIMAB. [Suspect]
     Active Substance: RITUXIMAB
     Route: 041
     Dates: start: 20120112, end: 20140329
  22. MYCOPHENOLATE MOFETIL. [Suspect]
     Active Substance: MYCOPHENOLATE MOFETIL
     Indication: NEPHROTIC SYNDROME
     Route: 048
     Dates: start: 201003
  23. PREDNISOLONE. [Suspect]
     Active Substance: PREDNISOLONE
     Indication: NEPHROTIC SYNDROME
     Route: 048
  24. PREDNISOLONE. [Suspect]
     Active Substance: PREDNISOLONE
     Indication: FOCAL SEGMENTAL GLOMERULOSCLEROSIS
     Route: 048
     Dates: start: 20140914, end: 20140930
  25. LONGES [Concomitant]
     Active Substance: LISINOPRIL
     Indication: NEPHROTIC SYNDROME
     Route: 048
  26. ATARAX-P [Concomitant]
     Active Substance: HYDROXYZINE HYDROCHLORIDE
     Indication: PREMEDICATION
     Dosage: SINGLE
     Route: 042
     Dates: start: 20110329, end: 20110329
  27. LANSOPRAZOLE. [Concomitant]
     Active Substance: LANSOPRAZOLE
     Indication: PROPHYLAXIS
     Dosage: DOSE INTERVAL UNCERTAINTY
     Route: 048
     Dates: end: 20170223
  28. FEBURIC [Concomitant]
     Active Substance: FEBUXOSTAT
     Indication: HYPERURICAEMIA
     Dosage: DOSE INTERVAL UNCERTAINTY
     Route: 048
     Dates: start: 20160824, end: 20160927
  29. FEBURIC [Concomitant]
     Active Substance: FEBUXOSTAT
     Indication: HYPERURICAEMIA
     Dosage: DOSE INTERVAL UNCERTAINTY
     Route: 048
     Dates: start: 20160928, end: 20161025
  30. BIO-THREE [Concomitant]
     Active Substance: HERBALS
     Route: 048
     Dates: start: 20120126
  31. CALONAL [Concomitant]
     Active Substance: ACETAMINOPHEN
     Indication: PREMEDICATION
     Dosage: SINGLE
     Route: 048
     Dates: start: 20110405, end: 20110405
  32. CALONAL [Concomitant]
     Active Substance: ACETAMINOPHEN
     Indication: PREMEDICATION
     Route: 048
     Dates: start: 20151211, end: 20151211
  33. MYCOPHENOLATE MOFETIL. [Suspect]
     Active Substance: MYCOPHENOLATE MOFETIL
     Indication: FOCAL SEGMENTAL GLOMERULOSCLEROSIS
  34. ALFAROL [Suspect]
     Active Substance: ALFACALCIDOL
     Indication: FOCAL SEGMENTAL GLOMERULOSCLEROSIS
     Route: 048
  35. ATARAX-P [Concomitant]
     Active Substance: HYDROXYZINE HYDROCHLORIDE
     Indication: PREMEDICATION
     Dosage: SINGLE
     Route: 042
     Dates: start: 20110405, end: 20110405

REACTIONS (6)
  - Influenza [Recovered/Resolved]
  - Faeces soft [Recovered/Resolved]
  - Rhabdomyolysis [Recovered/Resolved]
  - Asthma [Recovered/Resolved]
  - Acute kidney injury [Recovered/Resolved]
  - Product use in unapproved indication [Unknown]

NARRATIVE: CASE EVENT DATE: 20120217
